FAERS Safety Report 6098009 (Version 2)
Quarter: 2012Q4

REPORT INFORMATION
  Report Type: 
  Country: US (occurrence: US)
  Receive Date: 20060803
  Receipt Date: 20121207
  Transmission Date: 20130627
  Serious: Yes (Hospitalization, Other)
  Sender: FDA-Public Use
  Company Number: US-JNJFOC-20060705318

PATIENT
  Age: 59 Year
  Sex: Female

DRUGS (6)
  1. MOTRIN [Suspect]
     Indication: JOINT SWELLING
     Dosage: 1 to 2 tablets a day
     Dates: start: 2005, end: 2005
  2. ALEVE [Suspect]
     Indication: JOINT SWELLING
     Dosage: 1 to 2 tablets a day
     Route: 048
     Dates: start: 200501, end: 200505
  3. ALTACE [Concomitant]
     Route: 048
  4. LIPITOR [Concomitant]
     Dosage: 40 mg daily (HS)
     Route: 048
  5. GLIPIZIDE [Concomitant]
     Dosage: 2.5 mg before breakfast daily
     Route: 048
  6. ACTOS [Concomitant]
     Route: 048

REACTIONS (4)
  - Diverticulitis [Recovered/Resolved]
  - Gastric ulcer [Recovered/Resolved with Sequelae]
  - Upper gastrointestinal haemorrhage [Recovered/Resolved]
  - Anaemia [Recovered/Resolved]
